FAERS Safety Report 8542035-3 (Version None)
Quarter: 2012Q3

REPORT INFORMATION
  Report Type: 
  Country: None (occurrence: None)
  Receive Date: 20120726
  Receipt Date: 20110927
  Transmission Date: 20120928
  Serious: No
  Sender: FDA-Public Use
  Company Number: US-ASTRAZENECA-2011SE58380

PATIENT
  Age: 40 Year
  Sex: Male

DRUGS (1)
  1. SEROQUEL [Suspect]
     Route: 048

REACTIONS (5)
  - POST-TRAUMATIC STRESS DISORDER [None]
  - DRUG DOSE OMISSION [None]
  - BIPOLAR DISORDER [None]
  - IRRITABILITY [None]
  - ANGER [None]
